FAERS Safety Report 8208976 (Version 3)
Quarter: 2013Q3

REPORT INFORMATION
  Report Type: Spontaneous
  Country: KR (occurrence: KR)
  Receive Date: 20111028
  Receipt Date: 20130816
  Transmission Date: 20140515
  Serious: Yes (Other)
  Sender: FDA-Public Use
  Company Number: KR-ELI_LILLY_AND_COMPANY-KR201110003652

PATIENT
  Age: 37 Year
  Sex: Male

DRUGS (4)
  1. DULOXETINE HYDROCHLORIDE [Suspect]
     Indication: MAJOR DEPRESSION
     Dosage: UNK UNK, UNKNOWN
     Dates: start: 200907
  2. VALPROIC ACID [Concomitant]
     Indication: CONVULSION
     Dosage: 1200 MG, QD
  3. VALPROIC ACID [Concomitant]
     Dosage: 900 MG, QD
  4. QUETIAPINE [Concomitant]
     Indication: DEPRESSION
     Dosage: 400 MG, QD
     Dates: start: 200904

REACTIONS (1)
  - Liver injury [Unknown]
